FAERS Safety Report 19096559 (Version 1)
Quarter: 2021Q2

REPORT INFORMATION
  Report Type: Spontaneous
  Country: US (occurrence: US)
  Receive Date: 20210406
  Receipt Date: 20210406
  Transmission Date: 20210717
  Serious: No
  Sender: FDA-Public Use
  Company Number: US-PFIZER INC-2018304049

PATIENT
  Age: 58 Year
  Sex: Female

DRUGS (1)
  1. XELJANZ XR [Suspect]
     Active Substance: TOFACITINIB CITRATE
     Dosage: 0.5 DF, UNK (TAKING HALF DOSE)

REACTIONS (5)
  - Condition aggravated [Unknown]
  - Pruritus [Unknown]
  - Dry skin [Unknown]
  - Intentional product misuse [Unknown]
  - Pain [Not Recovered/Not Resolved]
